FAERS Safety Report 8602441-5 (Version None)
Quarter: 2012Q3

REPORT INFORMATION
  Report Type: 
  Country: None (occurrence: None)
  Receive Date: 20120817
  Receipt Date: 19950522
  Transmission Date: 20120928
  Serious: Yes (Hospitalization)
  Sender: FDA-Public Use
  Company Number: US-ROCHE-1101605

PATIENT
  Sex: Male

DRUGS (12)
  1. LIDOCAINE [Concomitant]
     Dosage: DECREASED
  2. NITROGLYCERIN [Concomitant]
     Route: 041
  3. LOPRESSOR [Concomitant]
     Route: 042
  4. ACTIVASE [Suspect]
     Indication: ANGINA UNSTABLE
     Dosage: DECREASED
  5. LIDOCAINE [Concomitant]
     Route: 040
  6. ACTIVASE [Suspect]
     Indication: ACUTE MYOCARDIAL INFARCTION
  7. LIDOCAINE [Concomitant]
     Dosage: PER MINUTE
  8. LIDOCAINE [Concomitant]
     Route: 040
  9. IMDUR [Concomitant]
  10. HEPARIN [Concomitant]
     Dosage: 1000 UNITS PER HOUR
     Route: 041
  11. HEPARIN [Concomitant]
     Dosage: 5000 UNITS
     Route: 040
  12. MORPHINE [Concomitant]
     Route: 040

REACTIONS (2)
  - VENTRICULAR FIBRILLATION [None]
  - PAIN [None]
